FAERS Safety Report 4969457-1 (Version None)
Quarter: 2006Q2

REPORT INFORMATION
  Report Type: 
  Country: None (occurrence: None)
  Receive Date: 20060406
  Receipt Date: 20060322
  Transmission Date: 20061013
  Serious: Yes (Life-Threatening, Hospitalization)
  Sender: FDA-Public Use
  Company Number: B0418461A

PATIENT
  Age: 46 Year
  Sex: Male

DRUGS (2)
  1. ESKALITH [Suspect]
     Indication: BIPOLAR DISORDER
     Dates: start: 19980101
  2. RISPERIDONE [Suspect]

REACTIONS (13)
  - BLOOD BICARBONATE INCREASED [None]
  - BLOOD PH INCREASED [None]
  - CONVULSION [None]
  - DEHYDRATION [None]
  - DIABETIC KETOACIDOSIS [None]
  - ELECTROLYTE IMBALANCE [None]
  - HYPERGLYCAEMIA [None]
  - MANIA [None]
  - MYOCARDIAL INFARCTION [None]
  - NEUROLEPTIC MALIGNANT SYNDROME [None]
  - RENAL FAILURE ACUTE [None]
  - SOMNOLENCE [None]
  - WHITE BLOOD CELL COUNT INCREASED [None]
